FAERS Safety Report 21649952 (Version 9)
Quarter: 2023Q4

REPORT INFORMATION
  Report Type: Report from Study
  Country: TR (occurrence: None)
  Receive Date: 20221128
  Receipt Date: 20231120
  Transmission Date: 20240110
  Serious: Yes (Death, Hospitalization)
  Sender: FDA-Public Use
  Company Number: TR-ROCHE-3225092

PATIENT
  Age: 59 Year
  Sex: Male
  Weight: 104 kg

DRUGS (10)
  1. ATEZOLIZUMAB [Suspect]
     Active Substance: ATEZOLIZUMAB
     Indication: Small cell lung cancer extensive stage
     Dosage: START DATE OF MOST RECENT DOSE OF STUDY DRUG PRIOR TO SAE/AE: 22/NOV/2022 (1200MG)
     Route: 041
     Dates: start: 20221011
  2. CARBOPLATIN [Suspect]
     Active Substance: CARBOPLATIN
     Indication: Small cell lung cancer extensive stage
     Route: 042
     Dates: start: 20221011
  3. CARBOPLATIN [Suspect]
     Active Substance: CARBOPLATIN
     Dosage: START DATE OF MOST RECENT DOSE OF STUDY DRUG PRIOR TO AE ON 22/NOV/2022
     Route: 042
  4. ETOPOSIDE [Suspect]
     Active Substance: ETOPOSIDE
     Indication: Small cell lung cancer extensive stage
     Route: 065
     Dates: start: 20221011
  5. ETOPOSIDE [Suspect]
     Active Substance: ETOPOSIDE
     Dosage: START DATE OF MOST RECENT DOSE OF STUDY DRUG PRIOR TO AE ON 22/NOV/2022
     Route: 065
  6. SAMSCA [Concomitant]
     Active Substance: TOLVAPTAN
     Indication: Blood sodium decreased
     Dates: start: 20221013, end: 20221201
  7. CIPRALEX [Concomitant]
     Active Substance: ESCITALOPRAM OXALATE
     Dates: start: 20180901, end: 20221201
  8. ZYLET [Concomitant]
     Active Substance: LOTEPREDNOL ETABONATE\TOBRAMYCIN
     Indication: Ocular hyperaemia
     Dates: start: 20221024, end: 20221201
  9. HYALURONATE SODIUM\TREHALOSE [Concomitant]
     Active Substance: HYALURONATE SODIUM\TREHALOSE
     Indication: Ocular hyperaemia
     Dates: start: 20221024, end: 20221201
  10. FRAVEN [Concomitant]
     Indication: Neutropenia
     Route: 058
     Dates: start: 20221024, end: 20221025

REACTIONS (1)
  - Pneumonia aspiration [Fatal]

NARRATIVE: CASE EVENT DATE: 20221123
